FAERS Safety Report 18194252 (Version 4)
Quarter: 2020Q4

REPORT INFORMATION
  Report Type: Report from Study
  Country: FR (occurrence: FR)
  Receive Date: 20200825
  Receipt Date: 20201120
  Transmission Date: 20210113
  Serious: Yes (Hospitalization)
  Sender: FDA-Public Use
  Company Number: FR-JNJFOC-20200829211

PATIENT
  Age: 23 Year
  Sex: Female
  Weight: 50 kg

DRUGS (23)
  1. TRAMADOL. [Concomitant]
     Active Substance: TRAMADOL
  2. AZATHIOPRINE. [Concomitant]
     Active Substance: AZATHIOPRINE
  3. PREDNISONE. [Concomitant]
     Active Substance: PREDNISONE
     Dates: start: 20200127
  4. PARACETAMOL [Concomitant]
     Active Substance: ACETAMINOPHEN
  5. LOPERAMIDE [Concomitant]
     Active Substance: LOPERAMIDE
  6. NUTRYELT [Concomitant]
     Active Substance: IRON\MINERALS\POTASSIUM IOD\SODIUM FLUORIDE\SODIUM MOLYBDATE\SODIUM SELENITE\ZINC
  7. PREDNISONE. [Concomitant]
     Active Substance: PREDNISONE
  8. SPASFON                            /00765801/ [Concomitant]
     Active Substance: PHLOROGLUCINOL\1,3,5-TRIMETHOXYBENZENE
  9. TIORFAN [Concomitant]
     Active Substance: RACECADOTRIL
  10. STELARA [Suspect]
     Active Substance: USTEKINUMAB
     Indication: CROHN^S DISEASE
     Route: 058
     Dates: start: 20200113
  11. PREDNISONE. [Concomitant]
     Active Substance: PREDNISONE
  12. DIFFU-K [Concomitant]
     Active Substance: POTASSIUM CHLORIDE
  13. OROZAMUDOL [Concomitant]
     Active Substance: TRAMADOL
  14. ALVITYL                            /02362701/ [Concomitant]
  15. ACTISKENAN [Concomitant]
     Active Substance: MORPHINE SULFATE
  16. OPTIDRIL [Concomitant]
     Active Substance: ETHINYL ESTRADIOL\LEVONORGESTREL
  17. SOLUPRED                           /00016201/ [Concomitant]
     Active Substance: PREDNISOLONE
  18. ENTYVIO [Concomitant]
     Active Substance: VEDOLIZUMAB
  19. SMECTA [Concomitant]
     Active Substance: MONTMORILLONITE
  20. PANTOPRAZOLE [Concomitant]
     Active Substance: PANTOPRAZOLE
  21. CERNEVIT [Concomitant]
     Active Substance: VITAMINS
  22. SIMPONI [Concomitant]
     Active Substance: GOLIMUMAB
  23. NICOPASS [Concomitant]
     Active Substance: NICOTINE

REACTIONS (3)
  - Crohn^s disease [Recovered/Resolved]
  - Device related infection [Recovered/Resolved]
  - Malnutrition [Recovered/Resolved]

NARRATIVE: CASE EVENT DATE: 202001
